FAERS Safety Report 5065098-9 (Version None)
Quarter: 2006Q3

REPORT INFORMATION
  Report Type: 
  Country: None (occurrence: None)
  Receive Date: 20060727
  Receipt Date: 20060727
  Transmission Date: 20061208
  Serious: Yes (Hospitalization)
  Sender: FDA-Public Use
  Company Number: None

PATIENT
  Age: 57 Year
  Sex: Female
  Weight: 40.7784 kg

DRUGS (5)
  1. ESTRACE [Suspect]
     Indication: BREAST CANCER
     Dosage: 10 MG   TID   PO
     Route: 048
     Dates: start: 20060616, end: 20060726
  2. ACETAMINOPHEN [Concomitant]
  3. NEXIUM [Concomitant]
  4. NEURONTIN [Concomitant]
  5. OXYCODONE HCL [Concomitant]

REACTIONS (5)
  - ABDOMINAL PAIN [None]
  - BREAST PAIN [None]
  - HERPES ZOSTER [None]
  - INFECTION [None]
  - WHITE BLOOD CELL COUNT INCREASED [None]
